FAERS Safety Report 16327563 (Version 3)
Quarter: 2019Q2

REPORT INFORMATION
  Report Type: Report from Study
  Country: US (occurrence: US)
  Receive Date: 20190517
  Receipt Date: 20190624
  Transmission Date: 20190711
  Serious: Yes (Death, Hospitalization)
  Sender: FDA-Public Use
  Company Number: US-ACTELION-A-NJ2018-183502

PATIENT
  Age: 65 Year
  Sex: Male
  Weight: 75.74 kg

DRUGS (3)
  1. VELETRI [Suspect]
     Active Substance: EPOPROSTENOL
     Indication: PULMONARY HYPERTENSION
     Dosage: 16 NG/KG, PER MIN
     Route: 042
  2. VELETRI [Suspect]
     Active Substance: EPOPROSTENOL
     Dosage: 7 NG/KG, PER MIN
     Route: 042
  3. VELETRI [Suspect]
     Active Substance: EPOPROSTENOL
     Dosage: 10 NG/KG, PER MIN
     Route: 042

REACTIONS (11)
  - Blood count abnormal [Unknown]
  - Unevaluable investigation [Recovered/Resolved]
  - Appetite disorder [Unknown]
  - Disease complication [Fatal]
  - Scleroderma [Fatal]
  - Rash macular [Unknown]
  - Cardiac failure [Fatal]
  - Fluid overload [Unknown]
  - Weight decreased [Unknown]
  - Diarrhoea [Unknown]
  - Epistaxis [Unknown]

NARRATIVE: CASE EVENT DATE: 20181128
